FAERS Safety Report 22211676 (Version 1)
Quarter: 2023Q2

REPORT INFORMATION
  Report Type: Spontaneous
  Country: US (occurrence: None)
  Receive Date: 20230413
  Receipt Date: 20230413
  Transmission Date: 20230721
  Serious: No
  Sender: FDA-Public Use
  Company Number: None

PATIENT
  Sex: Male

DRUGS (1)
  1. VIGABATRIN [Suspect]
     Active Substance: VIGABATRIN
     Indication: Epilepsy
     Dosage: FREQUENCY : DAILY;?
     Route: 048
     Dates: start: 20230130, end: 20230303

REACTIONS (5)
  - Insomnia [None]
  - Somnolence [None]
  - Therapy interrupted [None]
  - Rash [None]
  - Therapy cessation [None]

NARRATIVE: CASE EVENT DATE: 20230223
